FAERS Safety Report 10200622 (Version 2)
Quarter: 2014Q2

REPORT INFORMATION
  Report Type: Spontaneous
  Country: US (occurrence: US)
  Receive Date: 20140528
  Receipt Date: 20140528
  Transmission Date: 20141212
  Serious: No
  Sender: FDA-Public Use
  Company Number: US-DRREDDYS-USA/USA/14/0039180

PATIENT
  Age: 8 Year
  Sex: Female

DRUGS (2)
  1. MONTELUKAST [Suspect]
     Indication: ASTHMA
     Route: 065
     Dates: start: 201302
  2. MONTELUKAST [Suspect]
     Indication: BRONCHOSPASM

REACTIONS (4)
  - Dizziness [Recovered/Resolved]
  - Dark circles under eyes [Recovered/Resolved]
  - Drug ineffective [Unknown]
  - Product taste abnormal [Unknown]
